FAERS Safety Report 5218972-4 (Version None)
Quarter: 2007Q1

REPORT INFORMATION
  Report Type: 
  Country: None (occurrence: None)
  Receive Date: 20070125
  Receipt Date: 20070112
  Transmission Date: 20070707
  Serious: Yes (Other)
  Sender: FDA-Public Use
  Company Number: PHBS2007JP01057

PATIENT
  Age: 48 Year
  Sex: Female

DRUGS (2)
  1. RITALIN [Suspect]
     Indication: DEPRESSION
     Route: 048
  2. AMOXAN [Suspect]

REACTIONS (2)
  - MACULAR OEDEMA [None]
  - VISUAL ACUITY REDUCED [None]
